FAERS Safety Report 8571671-3 (Version None)
Quarter: 2012Q3

REPORT INFORMATION
  Report Type: 
  Country: None (occurrence: None)
  Receive Date: 20120806
  Receipt Date: 20120724
  Transmission Date: 20120928
  Serious: No
  Sender: FDA-Public Use
  Company Number: US-JNJFOC-20120712317

PATIENT
  Sex: Male
  Weight: 115.67 kg

DRUGS (4)
  1. UNKNOWN MEDICATION [Concomitant]
     Indication: BLOOD PRESSURE
     Route: 048
     Dates: start: 20110101
  2. DURAGESIC-100 [Suspect]
     Indication: BACK PAIN
     Route: 062
     Dates: start: 20120101
  3. IBUPROFEN [Concomitant]
     Indication: BACK DISORDER
     Dosage: 400-600 MG
     Route: 048
  4. DURAGESIC-100 [Suspect]
     Route: 062
     Dates: start: 20120101, end: 20120101

REACTIONS (4)
  - THERAPEUTIC RESPONSE DECREASED [None]
  - DRUG INEFFECTIVE [None]
  - WRONG TECHNIQUE IN DRUG USAGE PROCESS [None]
  - PRODUCT QUALITY ISSUE [None]
